FAERS Safety Report 7003636-7 (Version None)
Quarter: 2010Q3

REPORT INFORMATION
  Report Type: 
  Country: None (occurrence: None)
  Receive Date: 20100920
  Receipt Date: 20090811
  Transmission Date: 20110219
  Serious: Yes (Hospitalization)
  Sender: FDA-Public Use
  Company Number: US-WYE-H10340209

PATIENT
  Sex: Female
  Weight: 56.3 kg

DRUGS (2)
  1. PROTONIX [Suspect]
     Indication: ABDOMINAL DISCOMFORT
     Route: 048
     Dates: start: 20090725, end: 20090725
  2. TYLENOL [Concomitant]
     Dosage: UNKNOWN PRN DOSE
     Route: 048

REACTIONS (1)
  - RASH ERYTHEMATOUS [None]
